FAERS Safety Report 8476095-5 (Version None)
Quarter: 2012Q2

REPORT INFORMATION
  Report Type: 
  Country: None (occurrence: None)
  Receive Date: 20120622
  Receipt Date: 20120612
  Transmission Date: 20120825
  Serious: Yes (Death)
  Sender: FDA-Public Use
  Company Number: KR-AGG-06-2012-0497

PATIENT
  Age: 84 Year
  Sex: Female

DRUGS (2)
  1. HEPARIN [Concomitant]
  2. TIROFIBAN HYDROCHLORIDE [Suspect]
     Indication: ISCHAEMIC STROKE
     Dosage: 0.3MG X 1, 1X A DAY INTRA-ARTERIAL
     Route: 013

REACTIONS (1)
  - ACUTE RESPIRATORY FAILURE [None]
